FAERS Safety Report 21819123 (Version 1)
Quarter: 2023Q1

REPORT INFORMATION
  Report Type: Spontaneous
  Country: US (occurrence: US)
  Receive Date: 20230104
  Receipt Date: 20230104
  Transmission Date: 20230418
  Serious: Yes (Other)
  Sender: FDA-Public Use
  Company Number: US-HALEON-USCH2022AMR052851

PATIENT
  Sex: Female
  Weight: 68.9 kg

DRUGS (21)
  1. TUMS [Suspect]
     Active Substance: CALCIUM CARBONATE
     Indication: Abdominal discomfort
     Dosage: UNK
     Dates: start: 202212
  2. KORLYM [Suspect]
     Active Substance: MIFEPRISTONE
     Indication: Cushing^s syndrome
     Dosage: 300 MG, QD
     Route: 048
     Dates: start: 20221122, end: 20221212
  3. KORLYM [Suspect]
     Active Substance: MIFEPRISTONE
     Dosage: 300 MG, QOD
     Route: 048
     Dates: start: 20221213, end: 202212
  4. KORLYM [Suspect]
     Active Substance: MIFEPRISTONE
     Dosage: 300 MG, QD
     Route: 048
     Dates: start: 202212, end: 202212
  5. SPIRONOLACTONE [Suspect]
     Active Substance: SPIRONOLACTONE
     Indication: Product used for unknown indication
     Dosage: UNK
     Dates: start: 202212
  6. AMLODIPINE [Concomitant]
     Active Substance: AMLODIPINE BESYLATE
     Indication: Product used for unknown indication
     Dosage: UNK
  7. ATORVASTATIN [Concomitant]
     Active Substance: ATORVASTATIN
     Indication: Product used for unknown indication
     Dosage: UNK
  8. BENAZEPRIL [Concomitant]
     Active Substance: BENAZEPRIL HYDROCHLORIDE
     Indication: Product used for unknown indication
     Dosage: UNK
  9. DULOXETINE [Concomitant]
     Active Substance: DULOXETINE
     Indication: Product used for unknown indication
     Dosage: UNK
  10. FAMOTIDINE [Concomitant]
     Active Substance: FAMOTIDINE
     Indication: Product used for unknown indication
     Dosage: UNK
  11. FIASP [Concomitant]
     Active Substance: INSULIN ASPART
     Indication: Product used for unknown indication
     Dosage: UNK
  12. LOSARTAN [Concomitant]
     Active Substance: LOSARTAN
     Indication: Product used for unknown indication
     Dosage: UNK
  13. MONTELUKAST [Concomitant]
     Active Substance: MONTELUKAST SODIUM
     Indication: Product used for unknown indication
     Dosage: UNK
  14. OTEZLA [Concomitant]
     Active Substance: APREMILAST
     Indication: Product used for unknown indication
     Dosage: UNK
  15. OZEMPIC [Concomitant]
     Active Substance: SEMAGLUTIDE
     Indication: Product used for unknown indication
     Dosage: UNK
  16. PREGABALIN [Concomitant]
     Active Substance: PREGABALIN
     Indication: Product used for unknown indication
     Dosage: UNK
  17. PROLIA [Concomitant]
     Active Substance: DENOSUMAB
     Indication: Product used for unknown indication
     Dosage: UNK
  18. TRAZODONE [Concomitant]
     Active Substance: TRAZODONE HYDROCHLORIDE
     Indication: Product used for unknown indication
     Dosage: UNK
  19. TREMFYA [Concomitant]
     Active Substance: GUSELKUMAB
     Indication: Product used for unknown indication
     Dosage: UNK
  20. TRESIBA [Concomitant]
     Active Substance: INSULIN DEGLUDEC
     Indication: Product used for unknown indication
     Dosage: UNK
  21. ZYRTEC [Concomitant]
     Active Substance: CETIRIZINE HYDROCHLORIDE
     Indication: Product used for unknown indication
     Dosage: UNK

REACTIONS (16)
  - Psoriatic arthropathy [Unknown]
  - Rash [Unknown]
  - Fatigue [Unknown]
  - Headache [Unknown]
  - Weight increased [Unknown]
  - Fluid retention [Unknown]
  - Musculoskeletal stiffness [Unknown]
  - Blood potassium decreased [Unknown]
  - Illness [Unknown]
  - Asthenia [Unknown]
  - Inflammatory marker increased [Unknown]
  - Hyperproteinaemia [Unknown]
  - Urticaria [Recovering/Resolving]
  - Palpitations [Recovering/Resolving]
  - Heart rate increased [Recovering/Resolving]
  - Constipation [Unknown]

NARRATIVE: CASE EVENT DATE: 20220101
